FAERS Safety Report 6537978-6 (Version None)
Quarter: 2010Q1

REPORT INFORMATION
  Report Type: 
  Country: None (occurrence: None)
  Receive Date: 20100114
  Receipt Date: 20100106
  Transmission Date: 20100710
  Serious: Yes (Death, Other)
  Sender: FDA-Public Use
  Company Number: JP-PFIZER INC-2009315381

PATIENT
  Age: 13 Day
  Sex: Female
  Weight: 2.656 kg

DRUGS (3)
  1. SILDENAFIL CITRATE [Suspect]
     Indication: PULMONARY HYPERTENSION
     Dosage: 1 MG/KG, 3X/DAY
     Route: 048
     Dates: start: 20071120
  2. SILDENAFIL CITRATE [Suspect]
     Dosage: 1 MG/KG, EVERY 4 HRS
  3. EPOPROSTENOL [Concomitant]
     Route: 042

REACTIONS (5)
  - FLUSHING [None]
  - HEART RATE INCREASED [None]
  - INFECTION [None]
  - PULMONARY HAEMORRHAGE [None]
  - VOMITING [None]
